APPROVED DRUG PRODUCT: TETRABENAZINE
Active Ingredient: TETRABENAZINE
Strength: 25MG
Dosage Form/Route: TABLET;ORAL
Application: A213316 | Product #002 | TE Code: AB
Applicant: ADAPTIS PHARMA PRIVATE LTD
Approved: Jan 22, 2020 | RLD: No | RS: No | Type: RX